FAERS Safety Report 10623181 (Version 1)
Quarter: 2014Q4

REPORT INFORMATION
  Report Type: Spontaneous
  Country: US (occurrence: None)
  Receive Date: 20141202
  Receipt Date: 20141202
  Transmission Date: 20150529
  Serious: No
  Sender: FDA-Public Use
  Company Number: None

PATIENT
  Age: 47 Year
  Sex: Female
  Weight: 62.6 kg

DRUGS (1)
  1. CIPROFLOXACIN. [Suspect]
     Active Substance: CIPROFLOXACIN
     Dosage: 1 TAB
     Route: 048
     Dates: start: 20141127, end: 20141130

REACTIONS (5)
  - Hyperhidrosis [None]
  - Feeling hot [None]
  - Nightmare [None]
  - Hallucination [None]
  - Chills [None]

NARRATIVE: CASE EVENT DATE: 20141130
